FAERS Safety Report 14547485 (Version 1)
Quarter: 2018Q1

REPORT INFORMATION
  Report Type: Spontaneous
  Country: BE (occurrence: BE)
  Receive Date: 20180219
  Receipt Date: 20180219
  Transmission Date: 20180509
  Serious: Yes (Hospitalization, Other)
  Sender: FDA-Public Use
  Company Number: BE-MYLANLABS-2018M1011274

PATIENT
  Age: 54 Year
  Sex: Male

DRUGS (5)
  1. CIPROFLOXACIN. [Concomitant]
     Active Substance: CIPROFLOXACIN
     Indication: ANTIBIOTIC THERAPY
     Dosage: UNK
     Route: 065
  2. BETAMETHASONE. [Suspect]
     Active Substance: BETAMETHASONE
     Indication: JOINT SWELLING
     Dosage: RECEIVED FIVE INTRA-ARTICULAR BETAMETHASONE INJECTIONS WITH A TWO WEEK INTERVAL
     Route: 014
  3. GLUCOSE [Concomitant]
     Active Substance: DEXTROSE
     Dosage: 2-5ML
     Route: 065
  4. GLUCOSE [Concomitant]
     Active Substance: DEXTROSE
     Indication: PRODUCT USED FOR UNKNOWN INDICATION
     Dosage: 1 ML (TEST DOSE)
     Route: 065
  5. CLINDAMYCIN. [Concomitant]
     Active Substance: CLINDAMYCIN
     Indication: ANTIBIOTIC THERAPY
     Dosage: UNK
     Route: 065

REACTIONS (2)
  - Opportunistic infection [Recovered/Resolved]
  - Bursitis infective [Recovered/Resolved]
